FAERS Safety Report 13386386 (Version 1)
Quarter: 2017Q1

REPORT INFORMATION
  Report Type: Spontaneous
  Country: DE (occurrence: DE)
  Receive Date: 20170330
  Receipt Date: 20170330
  Transmission Date: 20170429
  Serious: Yes (Other)
  Sender: FDA-Public Use
  Company Number: DE-FRESENIUS KABI-FK201702546

PATIENT
  Age: 91 Year
  Sex: Female

DRUGS (2)
  1. CEFUROXIME (MANUFACTURER UNKNOWN) [Suspect]
     Active Substance: CEFUROXIME
     Indication: TIBIA FRACTURE
     Route: 065
  2. DIPYRONE [Suspect]
     Active Substance: DIPYRONE
     Indication: TIBIA FRACTURE
     Route: 065

REACTIONS (1)
  - Dermatitis bullous [Recovering/Resolving]
